FAERS Safety Report 10183364 (Version 3)
Quarter: 2014Q2

REPORT INFORMATION
  Report Type: Spontaneous
  Country: JP (occurrence: JP)
  Receive Date: 20140520
  Receipt Date: 20140526
  Transmission Date: 20141212
  Serious: Yes (Life-Threatening, Hospitalization, Other)
  Sender: FDA-Public Use
  Company Number: JP-ASTRAZENECA-2014SE18985

PATIENT
  Age: 1043 Month
  Sex: Male

DRUGS (6)
  1. CRESTOR [Suspect]
     Indication: HYPERLIPIDAEMIA
     Route: 048
  2. ONEALFA [Concomitant]
     Route: 048
  3. PANALDINE [Concomitant]
     Route: 048
  4. NORVASC OD [Concomitant]
     Route: 048
  5. TAKEPRON [Concomitant]
     Route: 048
  6. BLOPRESS [Concomitant]
     Route: 048

REACTIONS (16)
  - Loss of consciousness [Recovered/Resolved]
  - Fall [Recovered/Resolved]
  - Blood creatine increased [Unknown]
  - Blood lactate dehydrogenase increased [Unknown]
  - Amylase increased [Unknown]
  - Blood potassium increased [Unknown]
  - C-reactive protein increased [Unknown]
  - White blood cell count increased [Unknown]
  - Blood urine present [Unknown]
  - Blood urea increased [Unknown]
  - Rhabdomyolysis [Unknown]
  - Protein urine present [Unknown]
  - Aspartate aminotransferase increased [Unknown]
  - Blood creatine phosphokinase increased [Unknown]
  - Alanine aminotransferase increased [Unknown]
  - Dizziness [Unknown]
